FAERS Safety Report 9669741 (Version 2)
Quarter: 2013Q4

REPORT INFORMATION
  Report Type: Spontaneous
  Country: GB (occurrence: GB)
  Receive Date: 20131105
  Receipt Date: 20131107
  Transmission Date: 20140711
  Serious: Yes (Other)
  Sender: FDA-Public Use
  Company Number: GB-GLAXOSMITHKLINE-B0936575A

PATIENT
  Sex: Female

DRUGS (1)
  1. NIQUITIN MINI LOZENGES 1.5MG [Suspect]
     Indication: EX-TOBACCO USER
     Dosage: 1.5MG FIFTEEN TIMES PER DAY
     Route: 065
     Dates: start: 20111102

REACTIONS (13)
  - Drug dependence [Unknown]
  - Intentional drug misuse [Unknown]
  - Feeling abnormal [Unknown]
  - Frustration [Unknown]
  - Irritability [Unknown]
  - Gingival recession [Unknown]
  - Sensitivity of teeth [Unknown]
  - Tooth erosion [Unknown]
  - Snoring [Unknown]
  - Fatigue [Unknown]
  - Nasal discomfort [Unknown]
  - Nicotine dependence [Unknown]
  - Alopecia [Unknown]
